FAERS Safety Report 8988134 (Version 1)
Quarter: 2012Q4

REPORT INFORMATION
  Report Type: 
  Country: DE (occurrence: ES)
  Receive Date: 20121227
  Receipt Date: 20121227
  Transmission Date: 20130627
  Serious: Yes (Hospitalization)
  Sender: FDA-Public Use
  Company Number: ES-FRI-1000041190

PATIENT
  Age: 77 Year
  Sex: Female

DRUGS (8)
  1. MEMANTINE [Suspect]
     Indication: DEMENTIA ALZHEIMER^S TYPE
     Dosage: 10 mg
     Route: 048
     Dates: start: 20120829, end: 20121016
  2. LOSARTAN [Concomitant]
     Dosage: 50 mg
     Route: 048
  3. ESCITALOPRAM [Concomitant]
     Dosage: 10 mg
     Route: 048
  4. RIVASTIGMINE [Concomitant]
     Dosage: 9.5 mg
     Route: 062
  5. PARACETAMOL [Concomitant]
     Route: 048
  6. QUETIAPINE [Concomitant]
     Dosage: 50 mg
     Route: 048
  7. SINTROM [Concomitant]
     Route: 048
  8. PRAVASTATIN [Concomitant]
     Dosage: 10 mg

REACTIONS (3)
  - Abnormal behaviour [Recovered/Resolved]
  - Hypersomnia [Recovered/Resolved]
  - Hypertension [Recovered/Resolved]
